FAERS Safety Report 7833639-1 (Version None)
Quarter: 2011Q4

REPORT INFORMATION
  Report Type: 
  Country: None (occurrence: None)
  Receive Date: 20111020
  Receipt Date: 20111006
  Transmission Date: 20120403
  Serious: Yes (Death, Hospitalization, Other)
  Sender: FDA-Public Use
  Company Number: 2011MA013059

PATIENT
  Age: 64 Year
  Sex: Female

DRUGS (4)
  1. FLUOROURACIL [Suspect]
     Indication: COLON CANCER
     Dates: start: 20080301
  2. LEUCOVORIN SODIUM [Suspect]
     Indication: COLON CANCER
     Dates: start: 20080301
  3. BEVACIZUMAB (BEVACIZUMAB) [Suspect]
     Indication: COLON CANCER
     Dates: start: 20080301
  4. IRINOTECAN HYDROCHLORIDE [Suspect]
     Indication: COLON CANCER
     Dates: start: 20080301

REACTIONS (12)
  - METASTASES TO LUNG [None]
  - METASTASES TO LIVER [None]
  - INTERSTITIAL LUNG DISEASE [None]
  - METASTASES TO OVARY [None]
  - LEUKOPENIA [None]
  - NEOPLASM PROGRESSION [None]
  - RESPIRATORY FAILURE [None]
  - COLON CANCER [None]
  - PNEUMOCYSTIS JIROVECI PNEUMONIA [None]
  - THROMBOCYTOPENIA [None]
  - BLOOD PRESSURE DECREASED [None]
  - DYSPNOEA EXERTIONAL [None]
